FAERS Safety Report 8939665 (Version 1)
Quarter: 2012Q4

REPORT INFORMATION
  Report Type: 
  Country: US (occurrence: US)
  Receive Date: 20121203
  Receipt Date: 20121203
  Transmission Date: 20130627
  Serious: No
  Sender: FDA-Public Use
  Company Number: US-BIOGENIDEC-2012BI055549

PATIENT
  Age: 23 Year
  Sex: Male

DRUGS (1)
  1. AVONEX [Suspect]
     Indication: MULTIPLE SCLEROSIS
     Route: 030

REACTIONS (10)
  - Susac^s syndrome [Unknown]
  - Retinal artery occlusion [Unknown]
  - Hypoaesthesia [Unknown]
  - Demyelination [Unknown]
  - Visual field defect [Recovered/Resolved]
  - Optic neuritis [Unknown]
  - Deafness bilateral [Unknown]
  - Paraesthesia [Unknown]
  - Headache [Unknown]
  - Confusional state [Unknown]
